FAERS Safety Report 6330248-0 (Version None)
Quarter: 2009Q3

REPORT INFORMATION
  Report Type: 
  Country: None (occurrence: None)
  Receive Date: 20090827
  Receipt Date: 20090529
  Transmission Date: 20100115
  Serious: No
  Sender: FDA-Public Use
  Company Number: US-KINGPHARMUSA00001-K200900654

PATIENT
  Age: 87 Year
  Sex: Female
  Weight: 58.05 kg

DRUGS (4)
  1. FLECTOR [Suspect]
     Indication: BACK PAIN
     Dosage: 1 PATCH, BID
     Route: 061
     Dates: start: 20090501
  2. PLAVIX [Concomitant]
     Indication: CEREBROVASCULAR ACCIDENT
     Dosage: UNK
  3. THYROID PREPARATIONS [Concomitant]
     Indication: THYROID DISORDER
     Dosage: UNK
  4. ENDOCRINE THERAPY [Concomitant]
     Indication: DIABETES MELLITUS
     Dosage: UNK

REACTIONS (3)
  - BALANCE DISORDER [None]
  - DIZZINESS [None]
  - DRUG ADMINISTRATION ERROR [None]
